FAERS Safety Report 15793944 (Version 1)
Quarter: 2019Q1

REPORT INFORMATION
  Report Type: Spontaneous
  Country: US (occurrence: US)
  Receive Date: 20190107
  Receipt Date: 20190107
  Transmission Date: 20190417
  Serious: Yes (Other)
  Sender: FDA-Public Use
  Company Number: US-BIOVITRUM-2019US0020

PATIENT
  Sex: Male

DRUGS (1)
  1. KINERET [Suspect]
     Active Substance: ANAKINRA
     Indication: STILL^S DISEASE
     Dosage: 100 MG EVERY TWO TO THREE DAYS
     Dates: start: 2016

REACTIONS (7)
  - Back pain [Unknown]
  - Urticaria [Unknown]
  - Malaise [Unknown]
  - Nausea [Unknown]
  - Pericardial effusion [Unknown]
  - Dyspnoea [Unknown]
  - Drug ineffective [Unknown]
